FAERS Safety Report 12106376 (Version 1)
Quarter: 2016Q1

REPORT INFORMATION
  Report Type: Other
  Country: RO (occurrence: AT)
  Receive Date: 20160223
  Receipt Date: 20160223
  Transmission Date: 20160526
  Serious: Yes (Death)
  Sender: FDA-Public Use
  Company Number: AT-AMPHASTAR PHARMACEUTICALS, INC.-1048313

PATIENT
  Age: 71 Year
  Sex: Female

DRUGS (3)
  1. DANAPAROID [Concomitant]
     Active Substance: DANAPAROID
  2. BROAD SPECTRUM ANTIBIOTICS [Concomitant]
  3. LOW MOLECULAR WEIGHT HEPARIN [Suspect]
     Active Substance: UNSPECIFIED INGREDIENT

REACTIONS (4)
  - Staphylococcal infection [None]
  - Skin necrosis [None]
  - Acute hepatic failure [Fatal]
  - Death [Fatal]
